FAERS Safety Report 14893202 (Version 1)
Quarter: 2018Q2

REPORT INFORMATION
  Report Type: Spontaneous
  Country: US (occurrence: US)
  Receive Date: 20180514
  Receipt Date: 20180514
  Transmission Date: 20180711
  Serious: No
  Sender: FDA-Public Use
  Company Number: US-ALLERGAN-1804095US

PATIENT
  Sex: Female

DRUGS (1)
  1. MINASTRIN 24 FE [Suspect]
     Active Substance: ETHINYL ESTRADIOL\NORETHINDRONE ACETATE
     Indication: HORMONE THERAPY
     Dosage: UNK
     Route: 065

REACTIONS (3)
  - Drug dose omission [Unknown]
  - Amenorrhoea [Unknown]
  - Off label use [Unknown]
